FAERS Safety Report 22305724 (Version 1)
Quarter: 2023Q2

REPORT INFORMATION
  Report Type: Spontaneous
  Country: US (occurrence: US)
  Receive Date: 20230510
  Receipt Date: 20230510
  Transmission Date: 20230721
  Serious: No
  Sender: FDA-Public Use
  Company Number: US-SA-SAC20230509001158

PATIENT
  Age: 74 Year
  Sex: Female

DRUGS (13)
  1. DUPIXENT [Suspect]
     Active Substance: DUPILUMAB
     Indication: Dermatitis atopic
     Dosage: 300 MG, QOW
     Route: 058
     Dates: start: 20210201
  2. ALLOPURINOL [Concomitant]
     Active Substance: ALLOPURINOL
  3. AMLODIPINE [Concomitant]
     Active Substance: AMLODIPINE BESYLATE
  4. ASPIRIN [Concomitant]
     Active Substance: ASPIRIN
  5. ATORVASTATIN [Concomitant]
     Active Substance: ATORVASTATIN
  6. BETAMETHASONE [Concomitant]
     Active Substance: BETAMETHASONE
  7. CLOBETASOL [Concomitant]
     Active Substance: CLOBETASOL
  8. FAMOTIDINE [Concomitant]
     Active Substance: FAMOTIDINE
  9. HYDROCHLOROTHIAZIDE [Concomitant]
     Active Substance: HYDROCHLOROTHIAZIDE
  10. JANUMET [Concomitant]
     Active Substance: METFORMIN HYDROCHLORIDE\SITAGLIPTIN PHOSPHATE
  11. METFORMIN [Concomitant]
     Active Substance: METFORMIN HYDROCHLORIDE
  12. METOPROLOL TARTRATE [Concomitant]
     Active Substance: METOPROLOL TARTRATE
  13. MUPRICON [Concomitant]

REACTIONS (2)
  - Dry eye [Unknown]
  - Arthralgia [Unknown]

NARRATIVE: CASE EVENT DATE: 20230201
